FAERS Safety Report 24319953 (Version 3)
Quarter: 2024Q4

REPORT INFORMATION
  Report Type: Spontaneous
  Country: JP (occurrence: JP)
  Receive Date: 20240914
  Receipt Date: 20241010
  Transmission Date: 20250115
  Serious: Yes (Death, Other)
  Sender: ABBVIE
  Company Number: JP-ABBVIE-5917661

PATIENT
  Age: 85 Year
  Sex: Male

DRUGS (2)
  1. RINVOQ [Suspect]
     Active Substance: UPADACITINIB
     Indication: Colitis ulcerative
     Dosage: FORM STRENGTH: 15 MILLIGRAM
     Route: 048
     Dates: start: 20240827, end: 20240831
  2. RINVOQ [Suspect]
     Active Substance: UPADACITINIB
     Indication: Colitis ulcerative
     Dosage: 45 MILLIGRAM
     Route: 048
     Dates: start: 20240821, end: 20240827

REACTIONS (8)
  - Cerebral haemorrhage [Fatal]
  - General physical health deterioration [Unknown]
  - Rectal ulcer [Recovered/Resolved]
  - Septic pulmonary embolism [Recovered/Resolved]
  - Systemic candida [Recovered/Resolved]
  - Full blood count decreased [Recovering/Resolving]
  - Bacteraemia [Recovered/Resolved]
  - Cytomegalovirus enterocolitis [Recovered/Resolved]

NARRATIVE: CASE EVENT DATE: 20240101
